FAERS Safety Report 16589577 (Version 1)
Quarter: 2019Q3

REPORT INFORMATION
  Report Type: Spontaneous
  Country: FR (occurrence: FR)
  Receive Date: 20190718
  Receipt Date: 20190718
  Transmission Date: 20191004
  Serious: Yes (Hospitalization)
  Sender: FDA-Public Use
  Company Number: FR-ACCORD-139087

PATIENT
  Age: 67 Year
  Sex: Female

DRUGS (1)
  1. LETROZOLE. [Suspect]
     Active Substance: LETROZOLE
     Indication: BREAST CANCER
     Route: 048
     Dates: start: 201708, end: 20190702

REACTIONS (2)
  - Cardiac failure [Recovered/Resolved]
  - Arrhythmia supraventricular [Not Recovered/Not Resolved]

NARRATIVE: CASE EVENT DATE: 201901
